FAERS Safety Report 8264885-3 (Version None)
Quarter: 2012Q2

REPORT INFORMATION
  Report Type: 
  Country: None (occurrence: None)
  Receive Date: 20120404
  Receipt Date: 20120328
  Transmission Date: 20120825
  Serious: Yes (Hospitalization, Disabling, Other)
  Sender: FDA-Public Use
  Company Number: 2009SP023403

PATIENT
  Age: 44 Year
  Sex: Female
  Weight: 101.6057 kg

DRUGS (1)
  1. NUVARING [Suspect]
     Indication: CONTRACEPTION
     Dates: start: 20040601, end: 20061001

REACTIONS (28)
  - PLEURAL EFFUSION [None]
  - PSEUDOBULBAR PALSY [None]
  - EMOTIONAL DISORDER [None]
  - BRAIN STEM STROKE [None]
  - VISUAL IMPAIRMENT [None]
  - COUGH [None]
  - LUNG CONSOLIDATION [None]
  - FATIGUE [None]
  - MULTIPLE INJURIES [None]
  - HYPERHIDROSIS [None]
  - AORTIC DISSECTION [None]
  - BLOOD URINE PRESENT [None]
  - HYPERCOAGULATION [None]
  - DYSPHONIA [None]
  - DIPLOPIA [None]
  - HYPERTENSION [None]
  - PULMONARY EMBOLISM [None]
  - AORTIC ANEURYSM [None]
  - DEPRESSION [None]
  - OPHTHALMOPLEGIA [None]
  - VOCAL CORD PARALYSIS [None]
  - DYSPHAGIA [None]
  - ATELECTASIS [None]
  - DEEP VEIN THROMBOSIS [None]
  - HYPOXIC-ISCHAEMIC ENCEPHALOPATHY [None]
  - MYASTHENIA GRAVIS [None]
  - CRYING [None]
  - ABDOMINAL MASS [None]
